FAERS Safety Report 5206314-X (Version None)
Quarter: 2007Q1

REPORT INFORMATION
  Report Type: 
  Country: None (occurrence: None)
  Receive Date: 20070111
  Receipt Date: 20070102
  Transmission Date: 20070707
  Serious: Yes (Hospitalization, Disabling, Other)
  Sender: FDA-Public Use
  Company Number: US-PFIZER INC-2005136723

PATIENT
  Sex: Male
  Weight: 104.3 kg

DRUGS (2)
  1. BEXTRA [Suspect]
     Indication: NECK PAIN
     Dates: start: 20030901, end: 20040801
  2. BEXTRA [Suspect]
     Indication: BACK PAIN

REACTIONS (7)
  - DEPRESSION [None]
  - DRUG DEPENDENCE [None]
  - FATIGUE [None]
  - HYPOAESTHESIA [None]
  - MYOCARDIAL INFARCTION [None]
  - PAIN IN EXTREMITY [None]
  - RASH [None]
